FAERS Safety Report 7208820-5 (Version None)
Quarter: 2011Q1

REPORT INFORMATION
  Report Type: 
  Country: None (occurrence: None)
  Receive Date: 20110104
  Receipt Date: 20101222
  Transmission Date: 20110831
  Serious: Yes (Other)
  Sender: FDA-Public Use
  Company Number: PHHY2010US87671

PATIENT
  Sex: Female

DRUGS (3)
  1. NORVASC [Concomitant]
  2. SYNTHROID [Concomitant]
  3. FEMARA [Suspect]
     Dosage: 2.5 MG, UNK
     Route: 048

REACTIONS (11)
  - JOINT RANGE OF MOTION DECREASED [None]
  - TOOTH DISORDER [None]
  - GAIT DISTURBANCE [None]
  - CARPAL TUNNEL SYNDROME [None]
  - HYPOAESTHESIA [None]
  - PAIN [None]
  - BLOOD TRIGLYCERIDES INCREASED [None]
  - BREATH ODOUR [None]
  - FEELING ABNORMAL [None]
  - ACTIVITIES OF DAILY LIVING IMPAIRED [None]
  - JOINT STIFFNESS [None]
